FAERS Safety Report 23665378 (Version 1)
Quarter: 2024Q1

REPORT INFORMATION
  Report Type: Spontaneous
  Country: US (occurrence: US)
  Receive Date: 20240322
  Receipt Date: 20240322
  Transmission Date: 20240410
  Serious: No
  Sender: FDA-Public Use
  Company Number: US-ABBVIE-5685510

PATIENT
  Age: 30 Year
  Sex: Female
  Weight: 108 kg

DRUGS (3)
  1. LILETTA [Suspect]
     Active Substance: LEVONORGESTREL
     Indication: Product used for unknown indication
     Dosage: TIME INTERVAL: AS NECESSARY
     Route: 015
     Dates: start: 20240301, end: 20240315
  2. PROCARDIA [Concomitant]
     Active Substance: NIFEDIPINE
     Indication: Product used for unknown indication
     Dosage: XL 30 MG 24 HR TABLET
     Route: 048
     Dates: start: 20240206, end: 20240307
  3. ADALAT CC [Concomitant]
     Active Substance: NIFEDIPINE
     Indication: Product used for unknown indication
     Dosage: FORM STRENGTH: 30 MG 24 HR TABLET?EVERY MORNING BEFORE BREAKFAST
     Route: 048
     Dates: start: 20240207, end: 20240308

REACTIONS (1)
  - Embedded device [Unknown]

NARRATIVE: CASE EVENT DATE: 20240315
